FAERS Safety Report 7031606-1 (Version None)
Quarter: 2010Q4

REPORT INFORMATION
  Report Type: 
  Country: None (occurrence: None)
  Receive Date: 20101006
  Receipt Date: 20101006
  Transmission Date: 20110411
  Serious: Yes (Hospitalization)
  Sender: FDA-Public Use
  Company Number: None

PATIENT
  Age: 53 Year
  Sex: Female
  Weight: 68.0396 kg

DRUGS (1)
  1. ZOLPIDEM TARTRATE [Suspect]
     Indication: SLEEP DISORDER
     Dosage: ONE TABLET AT NIGHT ONCE PO
     Route: 048
     Dates: start: 20100928, end: 20100928

REACTIONS (3)
  - AMNESIA [None]
  - SELF-MEDICATION [None]
  - SOMNAMBULISM [None]
